FAERS Safety Report 25183466 (Version 1)
Quarter: 2025Q2

REPORT INFORMATION
  Report Type: Report from Study
  Country: US (occurrence: US)
  Receive Date: 20250410
  Receipt Date: 20250410
  Transmission Date: 20250717
  Serious: Yes (Hospitalization)
  Sender: ROCHE
  Company Number: US-ROCHE-10000254624

PATIENT
  Age: 56 Year
  Sex: Male

DRUGS (2)
  1. HEMLIBRA [Suspect]
     Active Substance: EMICIZUMAB-KXWH
     Indication: Acquired haemophilia
     Dosage: INJECT 1ML (150MG) SUBCUTANEOUSLY EVERY WEEK FOR 4 DOSES THEN INJECT 1ML (150MG) SUBCUTANEOUSLY EVER
     Route: 058
  2. HEMLIBRA [Suspect]
     Active Substance: EMICIZUMAB-KXWH
     Dosage: INJECT 1ML (150MG) SUBCUTANEOUSLY EVERY WEEK FOR 4 DOSES THEN INJECT 1ML (150MG) SUBCUTANEOUSLY EVER
     Route: 058

REACTIONS (1)
  - Haemorrhage [Unknown]
